FAERS Safety Report 25778742 (Version 1)
Quarter: 2025Q3

REPORT INFORMATION
  Report Type: Spontaneous
  Country: US (occurrence: None)
  Receive Date: 20250908
  Receipt Date: 20250908
  Transmission Date: 20251020
  Serious: Yes (Hospitalization)
  Sender: FDA-CTU
  Company Number: None

PATIENT
  Age: 59 Year
  Sex: Female

DRUGS (1)
  1. DIMETHYL FUMARATE [Suspect]
     Active Substance: DIMETHYL FUMARATE
     Dosage: 240MG TWICE DAILY
     Route: 048

REACTIONS (6)
  - Atrial fibrillation [None]
  - Diabetic ketoacidosis [None]
  - Hypoaesthesia [None]
  - Paraesthesia [None]
  - Asthenia [None]
  - Systemic inflammatory response syndrome [None]
